FAERS Safety Report 21629187 (Version 2)
Quarter: 2022Q4

REPORT INFORMATION
  Report Type: Spontaneous
  Country: BD (occurrence: BD)
  Receive Date: 20221122
  Receipt Date: 20221230
  Transmission Date: 20230113
  Serious: Yes (Other)
  Sender: FDA-Public Use
  Company Number: BD-PFIZER INC-PV202200106270

PATIENT
  Age: 48 Year
  Sex: Female

DRUGS (3)
  1. PALBOCICLIB [Suspect]
     Active Substance: PALBOCICLIB
     Indication: Breast cancer female
     Dosage: 125 MG, 1X/DAY
     Route: 048
     Dates: start: 20220801
  2. PALBOCICLIB [Suspect]
     Active Substance: PALBOCICLIB
     Indication: Depression
     Dosage: 100 MG, CYCLIC (100 MG ONCE DAILY FOR 21 DAYS THEN 7 DAYS GAP)
     Route: 048
  3. LETROZOLE [Concomitant]
     Active Substance: LETROZOLE
     Dosage: 2.5 MG, 1X/DAY
     Dates: start: 202207

REACTIONS (10)
  - Ascites [Unknown]
  - Neoplasm progression [Unknown]
  - Dyspnoea [Unknown]
  - Heart rate increased [Unknown]
  - White blood cell count decreased [Unknown]
  - Haemoglobin decreased [Unknown]
  - Platelet count decreased [Unknown]
  - Blood urea increased [Unknown]
  - Abdominal distension [Unknown]
  - Carcinoembryonic antigen decreased [Unknown]

NARRATIVE: CASE EVENT DATE: 20220101
